FAERS Safety Report 6715826-9 (Version None)
Quarter: 2010Q2

REPORT INFORMATION
  Report Type: 
  Country: None (occurrence: None)
  Receive Date: 20100507
  Receipt Date: 20100430
  Transmission Date: 20101027
  Serious: Yes (Life-Threatening, Hospitalization, Other)
  Sender: FDA-Public Use
  Company Number: US-TEVA-181188USA

PATIENT
  Sex: Female
  Weight: 78.088 kg

DRUGS (2)
  1. COPAXONE [Suspect]
     Indication: MULTIPLE SCLEROSIS
     Route: 058
     Dates: start: 20080225, end: 20080611
  2. STEROIDS (NOS) [Suspect]

REACTIONS (3)
  - AUTOIMMUNE HEPATITIS [None]
  - LIVER DISORDER [None]
  - SHOCK [None]
